FAERS Safety Report 25298498 (Version 1)
Quarter: 2025Q2

REPORT INFORMATION
  Report Type: Other
  Country: IT (occurrence: IT)
  Receive Date: 20250512
  Receipt Date: 20250512
  Transmission Date: 20250717
  Serious: Yes (Death, Other)
  Sender: ANI
  Company Number: IT-ANIPHARMA-022702

PATIENT
  Age: 44 Year
  Sex: Female

DRUGS (4)
  1. FLUOXETINE [Suspect]
     Active Substance: FLUOXETINE HYDROCHLORIDE
     Indication: Product used for unknown indication
  2. COCAINE [Concomitant]
     Active Substance: COCAINE
     Indication: Product used for unknown indication
  3. SEPROXETINE [Concomitant]
     Active Substance: SEPROXETINE
     Indication: Product used for unknown indication
  4. FLUOXETINE [Suspect]
     Active Substance: FLUOXETINE HYDROCHLORIDE
     Indication: Product used for unknown indication
     Route: 045

REACTIONS (3)
  - Cardiac failure acute [Fatal]
  - Drug abuse [Fatal]
  - Toxicity to various agents [Fatal]
